FAERS Safety Report 23740540 (Version 1)
Quarter: 2024Q2

REPORT INFORMATION
  Report Type: Spontaneous
  Country: FI (occurrence: FI)
  Receive Date: 20240415
  Receipt Date: 20240415
  Transmission Date: 20240716
  Serious: Yes (Other)
  Sender: FDA-Public Use
  Company Number: None

PATIENT
  Age: 53 Year
  Sex: Female

DRUGS (5)
  1. OZEMPIC [Suspect]
     Active Substance: SEMAGLUTIDE
     Indication: Latent autoimmune diabetes in adults
     Dosage: 0.5 MG, QW
     Route: 058
     Dates: start: 202211, end: 202211
  2. RYBELSUS [Suspect]
     Active Substance: SEMAGLUTIDE
     Indication: Latent autoimmune diabetes in adults
     Dosage: 7 MG, QD
     Route: 048
     Dates: start: 202302
  3. VICTOZA [Suspect]
     Active Substance: LIRAGLUTIDE
     Indication: Latent autoimmune diabetes in adults
     Dosage: 0.6 MG, QD
     Route: 058
     Dates: start: 202305
  4. NOVORAPID [Concomitant]
     Active Substance: INSULIN ASPART
     Indication: Product used for unknown indication
     Dosage: UNK
     Route: 058
     Dates: start: 202209
  5. CANDESARTAN [Concomitant]
     Active Substance: CANDESARTAN
     Indication: Migraine
     Dosage: 4MGX1-2
     Route: 048
     Dates: start: 2016

REACTIONS (10)
  - Atrioventricular block complete [Unknown]
  - Vision blurred [Unknown]
  - Hot flush [Unknown]
  - Malaise [Unknown]
  - Nausea [Unknown]
  - Asthenia [Unknown]
  - Vomiting [Unknown]
  - Product use in unapproved indication [Unknown]
  - Product use in unapproved indication [Unknown]
  - Product use in unapproved indication [Unknown]

NARRATIVE: CASE EVENT DATE: 20221101
